FAERS Safety Report 15138982 (Version 1)
Quarter: 2018Q3

REPORT INFORMATION
  Report Type: Spontaneous
  Country: US (occurrence: US)
  Receive Date: 20180618
  Receipt Date: 20180618
  Transmission Date: 20181010
  Serious: Yes (Hospitalization)
  Sender: FDA-Public Use
  Company Number: None

PATIENT
  Age: 27 Year
  Sex: Male
  Weight: 100.2 kg

DRUGS (1)
  1. DAPTOMYCIN 500 MG HOSPIRA [Suspect]
     Active Substance: DAPTOMYCIN
     Indication: OSTEOMYELITIS
     Dosage: ?          OTHER FREQUENCY:Q24H;?
     Route: 042
     Dates: start: 20180329, end: 20180402

REACTIONS (2)
  - Blood creatine phosphokinase increased [None]
  - Abdominal discomfort [None]

NARRATIVE: CASE EVENT DATE: 20180402
